FAERS Safety Report 15946339 (Version 1)
Quarter: 2019Q1

REPORT INFORMATION
  Report Type: Spontaneous
  Country: US (occurrence: US)
  Receive Date: 20190122
  Receipt Date: 20190122
  Transmission Date: 20190417
  Serious: Yes (Other)
  Sender: FDA-Public Use
  Company Number: None

PATIENT
  Age: 69 Year
  Sex: Female
  Weight: 97.52 kg

DRUGS (9)
  1. METFORMIN [Concomitant]
     Active Substance: METFORMIN HYDROCHLORIDE
  2. PATANOL [Concomitant]
     Active Substance: OLOPATADINE HYDROCHLORIDE
  3. ASPIRIN - LOW DOSE [Concomitant]
  4. ATORVASTATIN [Concomitant]
     Active Substance: ATORVASTATIN
  5. MONTELUKAST [Concomitant]
     Active Substance: MONTELUKAST SODIUM
  6. MULTI VITAMIN [Concomitant]
     Active Substance: VITAMINS
  7. ACULAR [Concomitant]
     Active Substance: KETOROLAC TROMETHAMINE
  8. CVS STERILE SALI NE NASAL MIST [Suspect]
     Active Substance: SODIUM CHLORIDE
  9. TRAJENTA [Concomitant]
     Active Substance: LINAGLIPTIN

REACTIONS (1)
  - Bronchitis [None]

NARRATIVE: CASE EVENT DATE: 20180721
